FAERS Safety Report 8291864-2 (Version None)
Quarter: 2012Q2

REPORT INFORMATION
  Report Type: 
  Country: None (occurrence: None)
  Receive Date: 20120417
  Receipt Date: 20120410
  Transmission Date: 20120825
  Serious: Yes (Death, Other)
  Sender: FDA-Public Use
  Company Number: GB-ROCHE-1024556

PATIENT
  Sex: Female

DRUGS (1)
  1. LUCENTIS [Suspect]
     Indication: PRODUCT USED FOR UNKNOWN INDICATION
     Route: 050
     Dates: start: 20110316

REACTIONS (5)
  - DEHYDRATION [None]
  - DEATH [None]
  - AORTIC STENOSIS [None]
  - CIRCULATORY COLLAPSE [None]
  - HYPOTENSION [None]
